FAERS Safety Report 5671105-2 (Version None)
Quarter: 2008Q1

REPORT INFORMATION
  Report Type: 
  Country: None (occurrence: None)
  Receive Date: 20080318
  Receipt Date: 20080304
  Transmission Date: 20080703
  Serious: Yes (Hospitalization, Other)
  Sender: FDA-Public Use
  Company Number: US-ELI_LILLY_AND_COMPANY-US200801002049

PATIENT
  Sex: Female

DRUGS (7)
  1. FORTEO [Suspect]
     Indication: OSTEOPOROSIS
     Dosage: 20 UG, UNK
     Dates: start: 20070801, end: 20080111
  2. FORTEO [Suspect]
     Dates: end: 20080110
  3. CALCIUM [Concomitant]
  4. VITAMIN D [Concomitant]
  5. DIOVAN [Concomitant]
     Indication: BLOOD PRESSURE
  6. LORTAB [Concomitant]
     Indication: PAIN
  7. MEVACOR [Concomitant]
     Indication: BLOOD CHOLESTEROL

REACTIONS (6)
  - ATRIAL FIBRILLATION [None]
  - BLOOD PRESSURE ABNORMAL [None]
  - BREAST CANCER STAGE IV [None]
  - FEMUR FRACTURE [None]
  - PAIN IN EXTREMITY [None]
  - RESPIRATORY FAILURE [None]
